FAERS Safety Report 4564259-2 (Version None)
Quarter: 2005Q1

REPORT INFORMATION
  Report Type: 
  Country: None (occurrence: None)
  Receive Date: 20050128
  Receipt Date: 20040901
  Transmission Date: 20050727
  Serious: No
  Sender: FDA-Public Use
  Company Number: US-GLAXOSMITHKLINE-A0524239A

PATIENT
  Age: 34 Year
  Sex: Female

DRUGS (4)
  1. COMBIVIR [Suspect]
     Indication: HIV INFECTION
     Dosage: 1TAB TWICE PER DAY
     Route: 048
     Dates: start: 20040830
  2. TOPROL-XL [Concomitant]
  3. LEXAPRO [Concomitant]
  4. PEPCID [Concomitant]

REACTIONS (3)
  - BREAST SWELLING [None]
  - BREAST TENDERNESS [None]
  - MENSTRUAL DISORDER [None]
